FAERS Safety Report 23592331 (Version 2)
Quarter: 2024Q4

REPORT INFORMATION
  Report Type: Report from Study
  Country: CA (occurrence: CA)
  Receive Date: 20240304
  Receipt Date: 20241112
  Transmission Date: 20250114
  Serious: Yes (Hospitalization)
  Sender: GENMAB
  Company Number: CA-GENMAB-2024-00667

PATIENT
  Age: 70 Year
  Sex: Male

DRUGS (1)
  1. EPCORITAMAB [Suspect]
     Active Substance: EPCORITAMAB
     Indication: High-grade B-cell lymphoma
     Dosage: 48 MILLIGRAM, WEEKLY
     Route: 058
     Dates: start: 20231221

REACTIONS (1)
  - Hospitalisation [Recovered/Resolved]

NARRATIVE: CASE EVENT DATE: 20240201
